FAERS Safety Report 11891390 (Version 3)
Quarter: 2016Q1

REPORT INFORMATION
  Report Type: Report from Study
  Country: US (occurrence: US)
  Receive Date: 20160106
  Receipt Date: 20160209
  Transmission Date: 20160526
  Serious: Yes (Hospitalization, Other)
  Sender: FDA-Public Use
  Company Number: US-AMGEN-USASL2015140867

PATIENT
  Age: 61 Year
  Sex: Female

DRUGS (1)
  1. ENBREL [Suspect]
     Active Substance: ETANERCEPT
     Indication: RHEUMATOID ARTHRITIS
     Dosage: 50 MG, QWK
     Route: 065

REACTIONS (7)
  - Malaise [Unknown]
  - Influenza like illness [Unknown]
  - Fall [Unknown]
  - Erythema [Unknown]
  - Cellulitis [Unknown]
  - Rib fracture [Unknown]
  - Surgery [Unknown]

NARRATIVE: CASE EVENT DATE: 20160123
